FAERS Safety Report 23171628 (Version 1)
Quarter: 2023Q4

REPORT INFORMATION
  Report Type: Spontaneous
  Country: FR (occurrence: FR)
  Receive Date: 20231110
  Receipt Date: 20231110
  Transmission Date: 20240110
  Serious: Yes (Other)
  Sender: FDA-Public Use
  Company Number: None

PATIENT
  Age: 73 Year
  Sex: Female

DRUGS (1)
  1. METHOTREXATE [Suspect]
     Active Substance: METHOTREXATE
     Indication: Rheumatoid arthritis
     Route: 065
     Dates: start: 201509, end: 202104

REACTIONS (3)
  - Dyspnoea [Recovered/Resolved with Sequelae]
  - Atelectasis [Recovered/Resolved with Sequelae]
  - Pleural thickening [Recovered/Resolved]

NARRATIVE: CASE EVENT DATE: 20200801
